FAERS Safety Report 5706627-9 (Version None)
Quarter: 2008Q2

REPORT INFORMATION
  Report Type: 
  Country: None (occurrence: None)
  Receive Date: 20080414
  Receipt Date: 20080401
  Transmission Date: 20081010
  Serious: Yes (Hospitalization)
  Sender: FDA-Public Use
  Company Number: 2008AL001980

PATIENT
  Age: 85 Year
  Sex: Female

DRUGS (3)
  1. ACETAMINOPHEN [Suspect]
     Indication: OSTEOARTHRITIS
     Dosage: 1950 MG;QD;PO
     Route: 048
  2. ALCOHOL [Concomitant]
  3. CORTICOSTEROIDS [Concomitant]

REACTIONS (2)
  - HEPATIC ENZYME ABNORMAL [None]
  - LIVER DISORDER [None]
